FAERS Safety Report 7055724-7 (Version None)
Quarter: 2010Q4

REPORT INFORMATION
  Report Type: 
  Country: None (occurrence: None)
  Receive Date: 20101020
  Receipt Date: 20101020
  Transmission Date: 20110411
  Serious: No
  Sender: FDA-Public Use
  Company Number: None

PATIENT

DRUGS (1)
  1. LORATIDINE SYRUP [Suspect]
     Indication: ABDOMINAL DISCOMFORT
     Dosage: 1 TSP
     Dates: start: 20101007, end: 20101007

REACTIONS (5)
  - DIARRHOEA [None]
  - GRUNTING [None]
  - MOANING [None]
  - SOMNOLENCE [None]
  - VOMITING [None]
